FAERS Safety Report 18566556 (Version 1)
Quarter: 2020Q4

REPORT INFORMATION
  Report Type: Spontaneous
  Country: GB (occurrence: GB)
  Receive Date: 20201201
  Receipt Date: 20201201
  Transmission Date: 20210114
  Serious: Yes (Hospitalization)
  Sender: FDA-Public Use
  Company Number: GB-CANTON LABORATORIES, LLC-2096507

PATIENT
  Age: 69 Year
  Sex: Male

DRUGS (9)
  1. AMLODIPINE [Concomitant]
     Active Substance: AMLODIPINE BESYLATE
  2. EMPAGLIFLOZIN [Concomitant]
     Active Substance: EMPAGLIFLOZIN
     Route: 065
  3. ALOGLIPTIN. [Concomitant]
     Active Substance: ALOGLIPTIN
     Route: 065
  4. IBUPROFEN. [Suspect]
     Active Substance: IBUPROFEN
     Route: 061
     Dates: start: 20200910
  5. FLUCONAZOLE. [Suspect]
     Active Substance: FLUCONAZOLE
     Route: 048
  6. LOSARTAN POTASSIUM. [Concomitant]
     Active Substance: LOSARTAN POTASSIUM
     Route: 065
  7. NAPROSYN [Suspect]
     Active Substance: NAPROXEN
     Indication: PAIN IN EXTREMITY
     Route: 048
     Dates: start: 20200910, end: 20201002
  8. RIVAROXABAN [Suspect]
     Active Substance: RIVAROXABAN
     Route: 048
     Dates: start: 20200911
  9. GLICLAZIDE [Concomitant]
     Active Substance: GLICLAZIDE
     Route: 065

REACTIONS (1)
  - Application site haematoma [Recovering/Resolving]

NARRATIVE: CASE EVENT DATE: 20200921
